FAERS Safety Report 6792601-0 (Version None)
Quarter: 2010Q2

REPORT INFORMATION
  Report Type: 
  Country: None (occurrence: None)
  Receive Date: 20100624
  Receipt Date: 20081209
  Transmission Date: 20101027
  Serious: No
  Sender: FDA-Public Use
  Company Number: US-PFIZER INC-2008065496

PATIENT
  Age: 54 Year
  Sex: Female
  Weight: 63.6 kg

DRUGS (2)
  1. NICOTROL [Suspect]
     Indication: SMOKING CESSATION THERAPY
     Dosage: 10 MG/ML
     Dates: start: 20070101
  2. VYTORIN [Concomitant]

REACTIONS (4)
  - DRUG INTOLERANCE [None]
  - NASAL DISORDER [None]
  - OCULAR HYPERAEMIA [None]
  - TOBACCO USER [None]
